FAERS Safety Report 9754514 (Version 2)
Quarter: 2013Q4

REPORT INFORMATION
  Report Type: Spontaneous
  Country: US (occurrence: US)
  Receive Date: 20131213
  Receipt Date: 20131227
  Transmission Date: 20140711
  Serious: Yes (Hospitalization, Other)
  Sender: FDA-Public Use
  Company Number: US-PFIZER INC-2013355965

PATIENT
  Age: 67 Year
  Sex: Female

DRUGS (1)
  1. XELJANZ [Suspect]
     Indication: RHEUMATOID ARTHRITIS
     Dosage: 5 MG, 2X/DAY
     Route: 048
     Dates: start: 20130812

REACTIONS (2)
  - Temporal arteritis [Not Recovered/Not Resolved]
  - Oedema peripheral [Not Recovered/Not Resolved]
